FAERS Safety Report 9960438 (Version 1)
Quarter: 2014Q1

REPORT INFORMATION
  Report Type: Report from Study
  Country: US (occurrence: US)
  Receive Date: 20140305
  Receipt Date: 20140305
  Transmission Date: 20141002
  Serious: No
  Sender: FDA-Public Use
  Company Number: US-ABBVIE-13P-163-1104568-00

PATIENT
  Age: 53 Year
  Sex: Female
  Weight: 93.07 kg

DRUGS (2)
  1. HUMIRA [Suspect]
     Indication: CROHN^S DISEASE
     Dates: start: 20130509, end: 20130509
  2. HUMIRA [Suspect]
     Dates: start: 20130523, end: 20130523

REACTIONS (4)
  - Drug dose omission [Unknown]
  - Malaise [Unknown]
  - Incorrect dose administered [Unknown]
  - Erythema [Unknown]
